FAERS Safety Report 19657332 (Version 2)
Quarter: 2021Q3

REPORT INFORMATION
  Report Type: Report from Study
  Country: ES (occurrence: ES)
  Receive Date: 20210804
  Receipt Date: 20210810
  Transmission Date: 20211014
  Serious: Yes (Hospitalization, Other)
  Sender: FDA-Public Use
  Company Number: ES-009507513-2107ESP008402

PATIENT
  Age: 63 Year
  Sex: Male

DRUGS (1)
  1. PEMBROLIZUMAB. [Suspect]
     Active Substance: PEMBROLIZUMAB
     Indication: LIPOSARCOMA METASTATIC
     Dosage: UNK

REACTIONS (3)
  - Immune-mediated myocarditis [Recovering/Resolving]
  - Myasthenic syndrome [Recovering/Resolving]
  - Immune-mediated myositis [Recovering/Resolving]
